FAERS Safety Report 7271550-8 (Version None)
Quarter: 2011Q1

REPORT INFORMATION
  Report Type: 
  Country: None (occurrence: None)
  Receive Date: 20110128
  Receipt Date: 20110128
  Transmission Date: 20110831
  Serious: Yes (Other)
  Sender: FDA-Public Use
  Company Number: None

PATIENT
  Sex: Male
  Weight: 92.9874 kg

DRUGS (1)
  1. LOSARTAN POTASSIUM AND HYDROCHLOROTHIAZIDE [Suspect]
     Indication: BLOOD PRESSURE
     Dosage: 1 DAILY PO
     Route: 048

REACTIONS (5)
  - EYE PAIN [None]
  - BLOOD PRESSURE INCREASED [None]
  - NO THERAPEUTIC RESPONSE [None]
  - HEADACHE [None]
  - PRODUCT SUBSTITUTION ISSUE [None]
